FAERS Safety Report 5501267-9 (Version None)
Quarter: 2007Q4

REPORT INFORMATION
  Report Type: 
  Country: None (occurrence: None)
  Receive Date: 20071029
  Receipt Date: 20071015
  Transmission Date: 20080405
  Serious: Yes (Hospitalization)
  Sender: FDA-Public Use
  Company Number: TH-MERCK-0710THA00031

PATIENT
  Age: 36 Year
  Sex: Female

DRUGS (1)
  1. CANCIDAS [Suspect]
     Indication: CANDIDA SEPSIS
     Route: 042

REACTIONS (1)
  - INTRAVASCULAR HAEMOLYSIS [None]
